FAERS Safety Report 7482263-1 (Version None)
Quarter: 2011Q1

REPORT INFORMATION
  Report Type: 
  Country: None (occurrence: None)
  Receive Date: 20110308
  Receipt Date: 20100708
  Transmission Date: 20110831
  Serious: Yes (Other)
  Sender: FDA-Public Use
  Company Number: THYM-1001620

PATIENT
  Age: 59 Year
  Sex: Female

DRUGS (4)
  1. THYMOGLOBULIN [Suspect]
     Indication: KIDNEY TRANSPLANT REJECTION
  2. MYCOPHENOLATE MOFETIL [Concomitant]
  3. CORTICOSTEROIDS [Concomitant]
  4. TACROLIMUS [Concomitant]

REACTIONS (2)
  - GRAFT LOSS [None]
  - TRANSPLANT REJECTION [None]
